FAERS Safety Report 9110048 (Version 1)
Quarter: 2013Q1

REPORT INFORMATION
  Report Type: Spontaneous
  Country: JP (occurrence: JP)
  Receive Date: 20130222
  Receipt Date: 20130222
  Transmission Date: 20140127
  Serious: Yes (Other)
  Sender: FDA-Public Use
  Company Number: JP-JNJFOC-20130210220

PATIENT
  Age: 5 Decade
  Sex: Male

DRUGS (1)
  1. NICORETTE 2 MG GUM [Suspect]
     Indication: SMOKING CESSATION THERAPY
     Route: 048

REACTIONS (2)
  - Nicotine dependence [Unknown]
  - Intentional drug misuse [Not Recovered/Not Resolved]
